FAERS Safety Report 11217689 (Version 1)
Quarter: 2015Q2

REPORT INFORMATION
  Report Type: Other
  Country: AU (occurrence: AU)
  Receive Date: 20150625
  Receipt Date: 20150625
  Transmission Date: 20150821
  Serious: Yes (Other)
  Sender: FDA-Public Use
  Company Number: AU-LUPIN PHARMACEUTICALS INC.-2015-01851

PATIENT
  Age: 37 Year
  Sex: Female

DRUGS (1)
  1. QUETIAPINE [Suspect]
     Active Substance: QUETIAPINE
     Indication: BIPOLAR DISORDER
     Route: 065

REACTIONS (3)
  - Gestational hypertension [Unknown]
  - Exposure during pregnancy [Unknown]
  - Weight increased [Unknown]
